FAERS Safety Report 8349725-6 (Version None)
Quarter: 2012Q2

REPORT INFORMATION
  Report Type: 
  Country: None (occurrence: None)
  Receive Date: 20120509
  Receipt Date: 20120509
  Transmission Date: 20120825
  Serious: Yes (Hospitalization)
  Sender: FDA-Public Use
  Company Number: None

PATIENT
  Sex: Male
  Weight: 86.82 kg

DRUGS (1)
  1. CISPLATIN [Suspect]
     Dosage: 400 MG

REACTIONS (5)
  - TACHYCARDIA [None]
  - HYPOTENSION [None]
  - CARDIAC FAILURE [None]
  - HYPOXIA [None]
  - EMBOLISM [None]
